FAERS Safety Report 24292567 (Version 1)
Quarter: 2024Q3

REPORT INFORMATION
  Report Type: Spontaneous
  Country: US (occurrence: None)
  Receive Date: 20240906
  Receipt Date: 20240906
  Transmission Date: 20241017
  Serious: Yes (Other)
  Sender: Public
  Company Number: None

PATIENT
  Age: 25 Year
  Weight: 56.25 kg

DRUGS (1)
  1. DULCOLAX LAXATIVE [Suspect]
     Active Substance: BISACODYL

REACTIONS (4)
  - Vomiting projectile [None]
  - Heart rate increased [None]
  - Hyperhidrosis [None]
  - Fluid retention [None]

NARRATIVE: CASE EVENT DATE: 20240905
